FAERS Safety Report 13882691 (Version 1)
Quarter: 2017Q3

REPORT INFORMATION
  Report Type: Spontaneous
  Country: US (occurrence: US)
  Receive Date: 20170818
  Receipt Date: 20170818
  Transmission Date: 20171127
  Serious: No
  Sender: FDA-Public Use
  Company Number: US-009507513-1708USA007442

PATIENT
  Sex: Female

DRUGS (3)
  1. NEOSTIGMINE METHYLSULFATE. [Suspect]
     Active Substance: NEOSTIGMINE METHYLSULFATE
  2. BRIDION [Suspect]
     Active Substance: SUGAMMADEX
     Dosage: STRENGHT: 100 MG/ML
  3. GLYCOPYRROLATE. [Suspect]
     Active Substance: GLYCOPYRROLATE

REACTIONS (1)
  - Asthenia [Unknown]
